FAERS Safety Report 7970728-5 (Version None)
Quarter: 2011Q4

REPORT INFORMATION
  Report Type: 
  Country: None (occurrence: None)
  Receive Date: 20111212
  Receipt Date: 20111201
  Transmission Date: 20120403
  Serious: Yes (Other)
  Sender: FDA-Public Use
  Company Number: PHHY2011MX105782

PATIENT
  Sex: Female

DRUGS (4)
  1. DIOVAN [Suspect]
     Indication: HYPERTENSION
     Dosage: 1 DF(80 MG),DAILY
  2. REUMOPHAN [Concomitant]
     Indication: ARTHRALGIA
     Dosage: 2 DF, DAILY
     Dates: start: 20111101
  3. NORFLEX [Concomitant]
     Indication: JOINT SWELLING
     Dosage: 3 DF, UNK
     Dates: start: 20111101
  4. ARTRENE [Concomitant]
     Indication: ARTHRALGIA
     Dosage: 1 DF,DAILY
     Dates: start: 20111101

REACTIONS (6)
  - HEADACHE [None]
  - BLOOD PRESSURE INCREASED [None]
  - HYPOKINESIA [None]
  - ARTHRITIS [None]
  - LIGAMENT RUPTURE [None]
  - OEDEMA PERIPHERAL [None]
